FAERS Safety Report 9761020 (Version 3)
Quarter: 2014Q4

REPORT INFORMATION
  Report Type: Spontaneous
  Country: US (occurrence: None)
  Receive Date: 20131212
  Receipt Date: 20141107
  Transmission Date: 20150529
  Serious: Yes (Other)
  Sender: FDA-Public Use
  Company Number: 2013-US-004041

PATIENT
  Age: 45 Year
  Sex: Female

DRUGS (1)
  1. XYREM [Suspect]
     Active Substance: SODIUM OXYBATE
     Indication: NARCOLEPSY
     Route: 048
     Dates: start: 200706

REACTIONS (4)
  - Blood pressure inadequately controlled [None]
  - Intervertebral disc protrusion [None]
  - Intervertebral disc degeneration [None]
  - Back pain [None]

NARRATIVE: CASE EVENT DATE: 2008
